FAERS Safety Report 16794471 (Version 1)
Quarter: 2019Q4

REPORT INFORMATION
  Report Type: Spontaneous
  Country: US (occurrence: US)
  Receive Date: 20190910
  Receipt Date: 20190910
  Transmission Date: 20200122
  Serious: Yes (Disabling)
  Sender: FDA-Public Use
  Company Number: None

PATIENT
  Age: 55 Year
  Sex: Male

DRUGS (1)
  1. COLGATE PHOS-FLUR ORTHO DEFENSE ALCOHOL FREE ANTICAVITY MINT FLUORIDE [Suspect]
     Active Substance: SODIUM FLUORIDE
     Route: 048
     Dates: start: 20180824, end: 20180824

REACTIONS (11)
  - Cough [None]
  - Nasopharyngitis [None]
  - Vomiting [None]
  - Vitamin D decreased [None]
  - Epstein-Barr virus infection [None]
  - Influenza like illness [None]
  - Dizziness [None]
  - Nausea [None]
  - Fatigue [None]
  - Asthenia [None]
  - Decreased appetite [None]

NARRATIVE: CASE EVENT DATE: 20180825
